FAERS Safety Report 11996825 (Version 6)
Quarter: 2018Q3

REPORT INFORMATION
  Report Type: Report from Study
  Country: None (occurrence: US)
  Receive Date: 20160203
  Receipt Date: 20180830
  Transmission Date: 20181010
  Serious: Yes (Hospitalization, Other)
  Sender: FDA-Public Use
  Company Number: US-ABBVIE-15K-163-1415670-00

PATIENT
  Age: 59 Year
  Sex: Male

DRUGS (9)
  1. SPIRIVA [Concomitant]
     Active Substance: TIOTROPIUM BROMIDE MONOHYDRATE
     Indication: CHRONIC OBSTRUCTIVE PULMONARY DISEASE
  2. HUMIRA [Suspect]
     Active Substance: ADALIMUMAB
     Route: 058
     Dates: start: 2012
  3. LISINOPRIL. [Concomitant]
     Active Substance: LISINOPRIL
     Indication: HYPERTENSION
  4. ATORVASTATIN [Concomitant]
     Active Substance: ATORVASTATIN
     Indication: BLOOD CHOLESTEROL INCREASED
  5. HUMIRA [Suspect]
     Active Substance: ADALIMUMAB
     Indication: RHEUMATOID ARTHRITIS
     Route: 058
     Dates: start: 2009, end: 2011
  6. MELOXICAM. [Concomitant]
     Active Substance: MELOXICAM
     Indication: RHEUMATOID ARTHRITIS
  7. ULORIC [Concomitant]
     Active Substance: FEBUXOSTAT
     Indication: GOUT
  8. ASPIRIN. [Concomitant]
     Active Substance: ASPIRIN
     Indication: PRODUCT USED FOR UNKNOWN INDICATION
  9. CARVIDOL [Concomitant]
     Indication: CARDIAC DISORDER

REACTIONS (16)
  - Asthenia [Not Recovered/Not Resolved]
  - Joint swelling [Recovering/Resolving]
  - Peripheral swelling [Recovering/Resolving]
  - Chronic kidney disease [Not Recovered/Not Resolved]
  - Cardiac failure congestive [Recovered/Resolved]
  - Peripheral swelling [Recovered/Resolved]
  - Weight bearing difficulty [Recovering/Resolving]
  - Gait disturbance [Recovered/Resolved]
  - Atrial fibrillation [Recovering/Resolving]
  - Rheumatoid arthritis [Recovered/Resolved]
  - Cardiac failure congestive [Recovering/Resolving]
  - Fatigue [Not Recovered/Not Resolved]
  - Injection site bruising [Recovering/Resolving]
  - Chronic obstructive pulmonary disease [Recovering/Resolving]
  - Cardiac failure congestive [Recovered/Resolved]
  - Injection site pain [Recovered/Resolved]

NARRATIVE: CASE EVENT DATE: 2009
